FAERS Safety Report 9756543 (Version 1)
Quarter: 2013Q4

REPORT INFORMATION
  Report Type: Spontaneous
  Country: US (occurrence: US)
  Receive Date: 20131213
  Receipt Date: 20131213
  Transmission Date: 20140711
  Serious: No
  Sender: FDA-Public Use
  Company Number: US-GLAXOSMITHKLINE-A1045343A

PATIENT
  Age: 57 Year
  Sex: Female

DRUGS (3)
  1. NICODERM CQ 21MG [Suspect]
     Indication: EX-TOBACCO USER
     Dates: start: 2012
  2. NICOTINE PATCH UNKNOWN BRAND [Suspect]
     Indication: EX-TOBACCO USER
  3. WALGREENS NICOTINE TRANSDERMAL SYSTEM PATCH CLEAR, 14MG [Suspect]
     Indication: EX-TOBACCO USER
     Dates: start: 201307

REACTIONS (4)
  - Irritability [Recovered/Resolved]
  - Irritability [Recovered/Resolved]
  - Feeling abnormal [Recovered/Resolved]
  - Application site rash [Recovered/Resolved]
